FAERS Safety Report 6166800-5 (Version None)
Quarter: 2009Q2

REPORT INFORMATION
  Report Type: 
  Country: None (occurrence: None)
  Receive Date: 20090423
  Receipt Date: 20090423
  Transmission Date: 20091009
  Serious: Yes (Other)
  Sender: FDA-Public Use
  Company Number: None

PATIENT
  Sex: Female
  Weight: 79.3795 kg

DRUGS (2)
  1. FOSAMAX PLUS D [Suspect]
     Indication: OSTEOPENIA
     Dosage: ONE TABLET WEEKLY PO
     Route: 048
     Dates: start: 20060415, end: 20060501
  2. FOSAMAX PLUS D [Suspect]
     Indication: OSTEOPOROSIS
     Dosage: ONE TABLET WEEKLY PO
     Route: 048
     Dates: start: 20060415, end: 20060501

REACTIONS (4)
  - ARTHRALGIA [None]
  - HEART RATE INCREASED [None]
  - MYALGIA [None]
  - PALPITATIONS [None]
